FAERS Safety Report 25534985 (Version 1)
Quarter: 2025Q3

REPORT INFORMATION
  Report Type: Spontaneous
  Country: US (occurrence: US)
  Receive Date: 20250709
  Receipt Date: 20250709
  Transmission Date: 20251020
  Serious: Yes (Life-Threatening, Other)
  Sender: CHIESI
  Company Number: US-CHIESI-2025CHF04648

PATIENT
  Sex: Female

DRUGS (3)
  1. KENGREAL [Suspect]
     Active Substance: CANGRELOR
     Indication: Stent placement
     Route: 065
  2. KENGREAL [Suspect]
     Active Substance: CANGRELOR
     Indication: Nervous system disorder
     Route: 065
  3. KENGREAL [Suspect]
     Active Substance: CANGRELOR
     Indication: Off label use
     Route: 065

REACTIONS (9)
  - Cardiac arrest [Unknown]
  - Respiratory gas exchange disorder [Unknown]
  - Respiratory depression [Unknown]
  - Respiratory tract haemorrhage [Unknown]
  - Drug ineffective for unapproved indication [Unknown]
  - Off label use [Recovered/Resolved]
  - Off label use [Recovered/Resolved]
  - Off label use [Recovered/Resolved]
  - Off label use [Recovered/Resolved]
